FAERS Safety Report 4933132-X (Version None)
Quarter: 2006Q1

REPORT INFORMATION
  Report Type: 
  Country: None (occurrence: None)
  Receive Date: 20060301
  Receipt Date: 20060301
  Transmission Date: 20060701
  Serious: Yes (Hospitalization)
  Sender: FDA-Public Use
  Company Number: None

PATIENT
  Sex: Male
  Weight: 117.028 kg

DRUGS (1)
  1. SIMVASTATIN [Suspect]
     Indication: BLOOD CHOLESTEROL
     Dosage: ONE TABLET AT BEDTIME PO
     Route: 048
     Dates: start: 20041230, end: 20051230

REACTIONS (2)
  - HAEMODIALYSIS [None]
  - RHABDOMYOLYSIS [None]
